FAERS Safety Report 6326511-X (Version None)
Quarter: 2009Q3

REPORT INFORMATION
  Report Type: 
  Country: None (occurrence: None)
  Receive Date: 20090821
  Receipt Date: 20090810
  Transmission Date: 20100115
  Serious: Yes (Other)
  Sender: FDA-Public Use
  Company Number: ADR12772009

PATIENT
  Age: 37 Year
  Sex: Female

DRUGS (5)
  1. RANITIDINE [Suspect]
     Indication: DYSPEPSIA
     Dosage: 150 MG ORAL
     Route: 048
     Dates: start: 20031126, end: 20040928
  2. MEBENDAZOLE (UNKNOWN) [Concomitant]
  3. PROCHLORPERAZINE (3 MG) [Concomitant]
  4. ATENOLOL [Concomitant]
  5. AMOXICILLIN [Concomitant]

REACTIONS (2)
  - PREMATURE LABOUR [None]
  - URINARY TRACT INFECTION [None]
